FAERS Safety Report 6804708-X (Version None)
Quarter: 2010Q2

REPORT INFORMATION
  Report Type: 
  Country: None (occurrence: None)
  Receive Date: 20100628
  Receipt Date: 20070514
  Transmission Date: 20101027
  Serious: No
  Sender: FDA-Public Use
  Company Number: US-PFIZER INC-2007039934

PATIENT
  Sex: Female
  Weight: 63.5 kg

DRUGS (2)
  1. RELPAX [Suspect]
     Indication: MIGRAINE
  2. MAXALT [Concomitant]

REACTIONS (2)
  - CYSTITIS [None]
  - NASAL POLYPS [None]
